FAERS Safety Report 7689306-0 (Version None)
Quarter: 2011Q3

REPORT INFORMATION
  Report Type: 
  Country: None (occurrence: None)
  Receive Date: 20110817
  Receipt Date: 20110809
  Transmission Date: 20111222
  Serious: Yes (Death, Hospitalization, Other)
  Sender: FDA-Public Use
  Company Number: US-BAYER-2011-006463

PATIENT
  Age: 69 Year
  Sex: Female
  Weight: 89.796 kg

DRUGS (22)
  1. MANNITOL [Concomitant]
     Dosage: 100 ML, UNK
     Dates: start: 20050627, end: 20050627
  2. PHENYLEPHRINE HCL [Concomitant]
     Dosage: 65 ML, UNK
     Route: 042
     Dates: start: 20050627, end: 20050627
  3. ANCEF [Concomitant]
     Dosage: 2 GM
     Route: 042
     Dates: start: 20050627, end: 20050627
  4. TRASYLOL [Suspect]
     Indication: MITRAL VALVE REPLACEMENT
  5. NITROLINGUAL PUMPSPRAY [Concomitant]
     Dosage: UNK UNK, PRN
     Route: 060
  6. HEPARIN [Concomitant]
     Dosage: 20000 UNITS
     Route: 042
     Dates: start: 20050627, end: 20050627
  7. PLATELETS [Concomitant]
     Dosage: 1 U, UNK
     Dates: start: 20050627, end: 20050627
  8. ISOSORBIDE DINITRATE [Concomitant]
     Dosage: 40 MG, QD
     Route: 048
  9. ETOMIDATE [Concomitant]
     Dosage: 20 MG, UNK
     Route: 042
     Dates: start: 20050627, end: 20050627
  10. SULAR [Concomitant]
     Dosage: 20 MG, QD
     Route: 048
  11. NITROGLYCERIN [Concomitant]
     Dosage: 7.5 ML, UNK
     Route: 042
     Dates: start: 20050627, end: 20050627
  12. EPINEPHRINE [Concomitant]
     Dosage: 200 ML, UNK
     Route: 042
     Dates: start: 20050627, end: 20050627
  13. CLONIDINE [Concomitant]
     Dosage: 0.3 MG, QD
     Route: 048
  14. NIPRIDE [Concomitant]
     Dosage: 0.2 ML, UNK
     Route: 042
     Dates: start: 20050627, end: 20050627
  15. TRIAMTERENE [Concomitant]
     Dosage: 37.5 MG, QD
     Route: 048
  16. HYDROCHLOROTHIAZIDE [Concomitant]
     Dosage: 25 MG, QD
     Route: 048
  17. HEPARIN [Concomitant]
     Dosage: 15827 U, UNK
     Dates: start: 20050627, end: 20050627
  18. ACETYLSALICYLIC ACID SRT [Concomitant]
     Dosage: UNK UNK, QD
     Route: 048
  19. TRASYLOL [Suspect]
     Indication: CORONARY ARTERY BYPASS
     Dosage: 200 ML PUMP PRIME LOADING DOSE
     Route: 042
     Dates: start: 20050627, end: 20050627
  20. COUMADIN [Concomitant]
     Dosage: UNK UNK, QD
     Route: 048
  21. LEVOTHROID [Concomitant]
     Dosage: 100 MCG
     Route: 048
  22. FRESH FROZEN PLASMA [Concomitant]
     Dosage: 4 U, UNK
     Dates: start: 20050627, end: 20050627

REACTIONS (12)
  - MULTI-ORGAN FAILURE [None]
  - UNEVALUABLE EVENT [None]
  - INJURY [None]
  - ANXIETY [None]
  - FEAR [None]
  - STRESS [None]
  - PAIN [None]
  - EMOTIONAL DISTRESS [None]
  - RENAL FAILURE [None]
  - DEATH [None]
  - RENAL IMPAIRMENT [None]
  - RENAL INJURY [None]
